FAERS Safety Report 24869843 (Version 4)
Quarter: 2025Q2

REPORT INFORMATION
  Report Type: Spontaneous
  Country: ES (occurrence: ES)
  Receive Date: 20250121
  Receipt Date: 20250611
  Transmission Date: 20250716
  Serious: Yes (Hospitalization, Other)
  Sender: MYLAN
  Company Number: ES-SANDOZ-SDZ2025ES000856

PATIENT
  Age: 31 Year
  Sex: Female

DRUGS (5)
  1. ARIPIPRAZOLE [Suspect]
     Active Substance: ARIPIPRAZOLE
     Indication: Psychiatric symptom
     Dosage: 15 MILLIGRAM, QD
  2. ARIPIPRAZOLE [Suspect]
     Active Substance: ARIPIPRAZOLE
     Indication: Antidepressant therapy
  3. VENLAFAXINE [Concomitant]
     Active Substance: VENLAFAXINE HYDROCHLORIDE
     Indication: Psychiatric symptom
     Dosage: 225 MILLIGRAM, QD
  4. VENLAFAXINE [Concomitant]
     Active Substance: VENLAFAXINE HYDROCHLORIDE
     Dosage: 150 MILLIGRAM, QD
  5. DIAZEPAM [Concomitant]
     Active Substance: DIAZEPAM
     Indication: Psychiatric symptom
     Dosage: 10 MILLIGRAM, QD

REACTIONS (6)
  - Unmasking of previously unidentified disease [Unknown]
  - Depressive symptom [Recovering/Resolving]
  - Huntington^s disease [Unknown]
  - Chorea [Recovered/Resolved]
  - Extrapyramidal disorder [Recovering/Resolving]
  - Suicidal ideation [Recovering/Resolving]
